FAERS Safety Report 7214108-9 (Version None)
Quarter: 2011Q1

REPORT INFORMATION
  Report Type: 
  Country: None (occurrence: None)
  Receive Date: 20110107
  Receipt Date: 20101216
  Transmission Date: 20110831
  Serious: Yes (Hospitalization)
  Sender: FDA-Public Use
  Company Number: IT-CELGENEUS-083-21880-10121963

PATIENT
  Sex: Male
  Weight: 88 kg

DRUGS (9)
  1. CARDIOASPIRIN [Concomitant]
     Indication: PROPHYLAXIS
     Route: 048
     Dates: start: 20101019, end: 20101103
  2. SOLDESAM [Suspect]
     Route: 048
     Dates: start: 20101106, end: 20101121
  3. REVLIMID [Suspect]
     Indication: MULTIPLE MYELOMA
     Route: 048
     Dates: start: 20101019, end: 20101103
  4. REVLIMID [Suspect]
     Route: 048
     Dates: start: 20101213
  5. SOLDESAM [Suspect]
     Indication: MULTIPLE MYELOMA
     Route: 048
     Dates: start: 20101019, end: 20101103
  6. CARDIOASPIRIN [Concomitant]
     Route: 048
     Dates: start: 20101105
  7. CLODRONIC ACID [Concomitant]
     Route: 048
     Dates: start: 20101106, end: 20101121
  8. LIMPIDEX [Concomitant]
     Indication: GASTROINTESTINAL DISORDER
     Route: 048
     Dates: start: 20101019
  9. FORMOTEROL W/BUDESONIDE [Concomitant]
     Indication: ASTHMA
     Dosage: 160+4.5
     Route: 048
     Dates: start: 20101106, end: 20101121

REACTIONS (4)
  - RENAL INJURY [None]
  - HYPERCALCAEMIA [None]
  - NAUSEA [None]
  - VOMITING [None]
